FAERS Safety Report 9627086 (Version 1)
Quarter: 2013Q4

REPORT INFORMATION
  Report Type: Spontaneous
  Country: CO (occurrence: CO)
  Receive Date: 20131016
  Receipt Date: 20131016
  Transmission Date: 20140711
  Serious: Yes (Other)
  Sender: FDA-Public Use
  Company Number: CO-VERTEX PHARMACEUTICALS INC-2013-010419

PATIENT
  Age: 74 Year
  Sex: Male
  Weight: 69 kg

DRUGS (3)
  1. INCIVO [Suspect]
     Indication: HEPATITIS C
     Dosage: 750 MG, TID
     Route: 048
     Dates: start: 20131001
  2. RIBAVIRIN [Concomitant]
     Indication: HEPATITIS C
     Dosage: 1000 MG, QD (200 MG FIVE TIMES A DAY)
     Route: 048
     Dates: start: 20131001
  3. INTERFERON [Concomitant]
     Indication: HEPATITIS C
     Dosage: 180 ?G, UNK AMPOULES
     Route: 058
     Dates: start: 20131001

REACTIONS (3)
  - Fall [Recovered/Resolved]
  - Dizziness [Unknown]
  - Haematoma [Unknown]
